FAERS Safety Report 5947826-0 (Version None)
Quarter: 2008Q4

REPORT INFORMATION
  Report Type: 
  Country: None (occurrence: None)
  Receive Date: 20081111
  Receipt Date: 20081104
  Transmission Date: 20090506
  Serious: Yes (Other)
  Sender: FDA-Public Use
  Company Number: FR-BRISTOL-MYERS SQUIBB COMPANY-14398887

PATIENT
  Age: 64 Year
  Sex: Male

DRUGS (5)
  1. MITOMYCIN [Suspect]
     Indication: BLADDER TRANSITIONAL CELL CARCINOMA
     Dosage: INJECTION
     Route: 066
  2. RIMONABANT [Interacting]
     Indication: OBESITY
     Route: 048
  3. GLIMEPIRIDE [Concomitant]
  4. CALCIPOTRIENE [Concomitant]
  5. CALCIPOTRIOL +  BETAMETHASONE DIPROPIO [Concomitant]

REACTIONS (5)
  - DERMATITIS EXFOLIATIVE [None]
  - DRUG INTERACTION [None]
  - PRURITUS [None]
  - RASH GENERALISED [None]
  - SKIN EXFOLIATION [None]
